FAERS Safety Report 25830794 (Version 1)
Quarter: 2025Q3

REPORT INFORMATION
  Report Type: Spontaneous
  Country: EU (occurrence: EU)
  Receive Date: 20250922
  Receipt Date: 20250922
  Transmission Date: 20251021
  Serious: Yes (Hospitalization, Other)
  Sender: VELOXIS PHARMACEUTICALS
  Company Number: EU-CELLTRION HEALTHCARE HUNGARY KFT-2020NL034621

PATIENT
  Age: 60 Year
  Sex: Female

DRUGS (13)
  1. TACROLIMUS [Suspect]
     Active Substance: TACROLIMUS
     Indication: Renal transplant
     Route: 065
  2. TACROLIMUS [Suspect]
     Active Substance: TACROLIMUS
     Indication: Immunosuppression
  3. PREDNISOLONE [Suspect]
     Active Substance: PREDNISOLONE
     Indication: Renal transplant
     Route: 065
  4. PREDNISOLONE [Suspect]
     Active Substance: PREDNISOLONE
     Indication: Crohn^s disease
     Route: 065
  5. PREDNISOLONE [Suspect]
     Active Substance: PREDNISOLONE
     Indication: Immunosuppression
  6. MYCOPHENOLATE MOFETIL [Suspect]
     Active Substance: MYCOPHENOLATE MOFETIL
     Indication: Crohn^s disease
     Route: 065
  7. MYCOPHENOLATE MOFETIL [Suspect]
     Active Substance: MYCOPHENOLATE MOFETIL
     Indication: Renal transplant
     Route: 065
  8. MYCOPHENOLATE MOFETIL [Suspect]
     Active Substance: MYCOPHENOLATE MOFETIL
     Indication: Immunosuppression
  9. INFLECTRA [Suspect]
     Active Substance: INFLIXIMAB-DYYB
     Indication: Crohn^s disease
     Route: 065
  10. INFLECTRA [Suspect]
     Active Substance: INFLIXIMAB-DYYB
     Route: 065
  11. INFLECTRA [Suspect]
     Active Substance: INFLIXIMAB-DYYB
     Route: 065
  12. AZATHIOPRINE SODIUM [Suspect]
     Active Substance: AZATHIOPRINE SODIUM
     Indication: Crohn^s disease
     Route: 065
  13. MERCAPTOPURINE [Suspect]
     Active Substance: MERCAPTOPURINE
     Indication: Crohn^s disease
     Route: 065

REACTIONS (5)
  - Granulomatous liver disease [Recovered/Resolved]
  - Cholangitis [Recovered/Resolved]
  - Enterocolitis [Recovered/Resolved]
  - Pulmonary granuloma [Recovered/Resolved]
  - Histoplasmosis disseminated [Recovered/Resolved]

NARRATIVE: CASE EVENT DATE: 20170101
